FAERS Safety Report 5775820-1 (Version None)
Quarter: 2008Q2

REPORT INFORMATION
  Report Type: 
  Country: None (occurrence: None)
  Receive Date: 20080617
  Receipt Date: 20080610
  Transmission Date: 20081010
  Serious: Yes (Other)
  Sender: FDA-Public Use
  Company Number: US-BAYER-200821587NA

PATIENT
  Age: 44 Year
  Sex: Male
  Weight: 68 kg

DRUGS (2)
  1. ULTRAVIST 300 [Suspect]
     Indication: COMPUTERISED TOMOGRAM ABDOMEN
     Dosage: TOTAL DAILY DOSE: 125 ML  UNIT DOSE: 500 ML
     Route: 042
     Dates: start: 20080401, end: 20080401
  2. REDI-CAT EZEM [Concomitant]
     Indication: COMPUTERISED TOMOGRAM ABDOMEN
     Dates: start: 20080401, end: 20080401

REACTIONS (2)
  - RASH [None]
  - SWELLING [None]
